FAERS Safety Report 4524425-9 (Version None)
Quarter: 2004Q4

REPORT INFORMATION
  Report Type: 
  Country: None (occurrence: None)
  Receive Date: 20041116
  Receipt Date: 20040809
  Transmission Date: 20050328
  Serious: Yes (Other)
  Sender: FDA-Public Use
  Company Number: PHEH2004US08127

PATIENT
  Age: 74 Year
  Sex: Male

DRUGS (6)
  1. GLEEVEC [Suspect]
     Indication: ACUTE MYELOID LEUKAEMIA
     Dosage: SEE IMAGE, ORAL
     Route: 048
     Dates: start: 20040701, end: 20040730
  2. GLEEVEC [Suspect]
     Indication: ACUTE MYELOID LEUKAEMIA
     Dosage: SEE IMAGE, ORAL
     Route: 048
     Dates: start: 20040706
  3. GLEEVEC [Suspect]
     Indication: ACUTE MYELOID LEUKAEMIA
     Dosage: 300 MG, QD, ORAL
     Route: 048
     Dates: start: 20040517, end: 20040705
  4. FLOMAX [Concomitant]
  5. LASIX [Concomitant]
  6. MULTIPLE VITAMINS (RETINOL, VITAMIN B NOS) [Concomitant]

REACTIONS (7)
  - GINGIVAL BLEEDING [None]
  - HAEMATOCRIT DECREASED [None]
  - HAEMOGLOBIN DECREASED [None]
  - PLATELET COUNT DECREASED [None]
  - RED BLOOD CELL COUNT DECREASED [None]
  - SWELLING FACE [None]
  - WHITE BLOOD CELL COUNT DECREASED [None]
